FAERS Safety Report 15888761 (Version 1)
Quarter: 2019Q1

REPORT INFORMATION
  Report Type: Report from Study
  Country: US (occurrence: US)
  Receive Date: 20190130
  Receipt Date: 20190130
  Transmission Date: 20190417
  Serious: Yes (Other)
  Sender: FDA-Public Use
  Company Number: US-BAYER-2017-018512

PATIENT
  Age: 65 Year
  Sex: Male

DRUGS (2)
  1. NEXAVAR [Suspect]
     Active Substance: SORAFENIB
     Indication: HEPATOCELLULAR CARCINOMA
     Dosage: 400MG PER DAY
  2. NEXAVAR [Suspect]
     Active Substance: SORAFENIB
     Indication: HEPATIC CANCER
     Dosage: 600 MG PER DAY

REACTIONS (8)
  - Depressed mood [None]
  - Decreased appetite [None]
  - Quality of life decreased [None]
  - Disturbance in attention [None]
  - Fatigue [None]
  - Off label use [None]
  - Gastrointestinal disorder [None]
  - Asthenia [None]

NARRATIVE: CASE EVENT DATE: 201603
